FAERS Safety Report 5203987-2 (Version None)
Quarter: 2007Q1

REPORT INFORMATION
  Report Type: 
  Country: None (occurrence: None)
  Receive Date: 20070110
  Receipt Date: 20061228
  Transmission Date: 20070707
  Serious: Yes (Death, Hospitalization, Disabling, Other)
  Sender: FDA-Public Use
  Company Number: DE-PFIZER INC-2005163994

PATIENT
  Sex: Female
  Weight: 54 kg

DRUGS (3)
  1. SU-011,248 [Suspect]
     Indication: RENAL CELL CARCINOMA STAGE UNSPECIFIED
     Route: 048
  2. IRENAT [Concomitant]
     Route: 048
  3. FAVISTAN [Concomitant]
     Route: 048

REACTIONS (4)
  - DISEASE PROGRESSION [None]
  - PARESIS [None]
  - PERIPHERAL SENSORY NEUROPATHY [None]
  - RENAL CELL CARCINOMA STAGE UNSPECIFIED [None]
